FAERS Safety Report 23074933 (Version 1)
Quarter: 2023Q4

REPORT INFORMATION
  Report Type: Spontaneous
  Country: US (occurrence: None)
  Receive Date: 20231017
  Receipt Date: 20231017
  Transmission Date: 20240109
  Serious: Yes (Hospitalization)
  Sender: FDA-Public Use
  Company Number: None

PATIENT
  Sex: Female
  Weight: 93 kg

DRUGS (21)
  1. CYCLOPHOSPHAMIDE [Suspect]
     Active Substance: CYCLOPHOSPHAMIDE
  2. DACTINOMYCIN [Concomitant]
     Active Substance: DACTINOMYCIN
  3. VINCRISTINE SULFATE [Concomitant]
     Active Substance: VINCRISTINE SULFATE
  4. VINORELBINE TARTRATE [Concomitant]
  5. CHLORHEXIDINE [Concomitant]
     Active Substance: CHLORHEXIDINE\CHLORHEXIDINE GLUCONATE
  6. HYDROXYZINE HCL [Concomitant]
  7. SERTRALINE [Concomitant]
  8. ALBUTEROL SULFATE [Concomitant]
     Active Substance: ALBUTEROL SULFATE
  9. BENZOYL PEROXIDE [Concomitant]
  10. CALCIUM CARBONATE [Concomitant]
  11. CLONIDINE [Concomitant]
  12. DOCUSATE SODIUM [Concomitant]
  13. FUROSEMIDE [Concomitant]
  14. HEPARIN [Concomitant]
  15. LACTULOSE [Concomitant]
  16. OLANZAPINE [Concomitant]
  17. ONDANSETRON [Concomitant]
  18. POLYETHYLENE GLYCOL [Concomitant]
     Active Substance: POLYETHYLENE GLYCOL
  19. PREDNISONE [Concomitant]
  20. SCOPOLAMINE [Concomitant]
  21. SENNOSIDES [Concomitant]

REACTIONS (8)
  - Vascular device infection [None]
  - Catheter site pain [None]
  - Bacterial infection [None]
  - Catheter site discharge [None]
  - Neutrophil count decreased [None]
  - White blood cell count decreased [None]
  - Pyrexia [None]
  - Adrenal insufficiency [None]

NARRATIVE: CASE EVENT DATE: 20231005
